FAERS Safety Report 19233715 (Version 2)
Quarter: 2021Q2

REPORT INFORMATION
  Report Type: Report from Study
  Country: US (occurrence: US)
  Receive Date: 20210507
  Receipt Date: 20210603
  Transmission Date: 20210717
  Serious: No
  Sender: FDA-Public Use
  Company Number: US-ELI_LILLY_AND_COMPANY-US202105002771

PATIENT
  Sex: Male
  Weight: 55.9 kg

DRUGS (1)
  1. HUMATROPE [Suspect]
     Active Substance: SOMATROPIN
     Indication: SHORT STATURE
     Dosage: 1.9 MG, DAILY
     Route: 065
     Dates: start: 201907

REACTIONS (3)
  - Hypertrichosis [Unknown]
  - Nail discolouration [Unknown]
  - Bone pain [Recovered/Resolved]
